FAERS Safety Report 15653599 (Version 2)
Quarter: 2018Q4

REPORT INFORMATION
  Report Type: Spontaneous
  Country: JP (occurrence: JP)
  Receive Date: 20181124
  Receipt Date: 20181220
  Transmission Date: 20190205
  Serious: Yes (Hospitalization)
  Sender: FDA-Public Use
  Company Number: JP-009507513-1811JPN002024J

PATIENT
  Age: 63 Year
  Sex: Male
  Weight: 64 kg

DRUGS (13)
  1. FEBURIC [Concomitant]
     Active Substance: FEBUXOSTAT
     Dosage: 5 MILLIGRAM, QD
     Route: 048
     Dates: start: 20180823
  2. DENOTAS [Concomitant]
     Active Substance: CALCIUM CARBONATE\CHOLECALCIFEROL\MAGNESIUM CARBONATE
     Dosage: 2 DOSAGE FORM, QD
     Route: 048
     Dates: start: 20180823
  3. MAGMITT [Concomitant]
     Active Substance: MAGNESIUM OXIDE
     Dosage: 500 MILLIGRAM, TID
     Route: 048
     Dates: start: 20180823
  4. NEUROVITAN [Concomitant]
     Active Substance: VITAMINS
     Dosage: 1 DOSAGE FORM, TID
     Route: 048
     Dates: start: 20180823
  5. TAKECAB [Concomitant]
     Active Substance: VONOPRAZAN FUMURATE
     Dosage: 10 MILLIGRAM, QD
     Route: 048
     Dates: start: 20180823
  6. CORTRIL [Concomitant]
     Active Substance: HYDROCORTISONE
     Dosage: 10 MILLIGRAM, BID
     Route: 048
     Dates: start: 20180823
  7. RHYTHMY [Concomitant]
     Active Substance: RILMAZAFONE HYDROCHLORIDE
     Dosage: 1 MILLIGRAM, QD
     Route: 048
     Dates: start: 20180823
  8. KEYTRUDA [Suspect]
     Active Substance: PEMBROLIZUMAB
     Indication: URETERIC CANCER RECURRENT
     Dosage: 200 MILLIGRAM, Q3W
     Route: 041
     Dates: start: 20180510, end: 20180823
  9. RANMARK [Suspect]
     Active Substance: DENOSUMAB
     Indication: METASTASES TO BONE
     Dosage: 120 MILLIGRAM
     Route: 058
     Dates: start: 20170713, end: 20180823
  10. LYRICA [Concomitant]
     Active Substance: PREGABALIN
     Dosage: 75 MILLIGRAM, QD
     Route: 048
     Dates: start: 20180823
  11. HACHIAZULE [Concomitant]
     Dosage: UNK UNK, QID
     Route: 065
     Dates: start: 20180823
  12. METHYCOBAL [Concomitant]
     Active Substance: METHYLCOBALAMIN
     Dosage: 250 MICROGRAM, TID
     Route: 048
     Dates: start: 20180823
  13. CORTRIL [Concomitant]
     Active Substance: HYDROCORTISONE
     Dosage: 20 MILLIGRAM, PRN
     Route: 048
     Dates: start: 20180823

REACTIONS (2)
  - Cerebral haemorrhage [Recovering/Resolving]
  - Hemiplegia [Recovering/Resolving]

NARRATIVE: CASE EVENT DATE: 20180906
